FAERS Safety Report 4536971-2 (Version None)
Quarter: 2004Q4

REPORT INFORMATION
  Report Type: 
  Country: None (occurrence: None)
  Receive Date: 20041220
  Receipt Date: 20040819
  Transmission Date: 20050328
  Serious: Yes (Life-Threatening)
  Sender: FDA-Public Use
  Company Number: A04200400761

PATIENT
  Age: 67 Year
  Sex: Male

DRUGS (3)
  1. ELOXATIN [Suspect]
     Indication: COLORECTAL CANCER METASTATIC
     Dosage: 94.4 MG/M2 OTHER (188.8 MG/M2), INTRAVENOUS DRIP; A FEW MINS
     Route: 041
     Dates: start: 20040616, end: 20040616
  2. LEUCOVORIN CALCIUM [Concomitant]
  3. FLUOROURACIL [Concomitant]

REACTIONS (4)
  - CARDIAC ARREST [None]
  - CONVULSION [None]
  - TACHYCARDIA [None]
  - VENTRICULAR FIBRILLATION [None]
